FAERS Safety Report 9131934 (Version 2)
Quarter: 2014Q1

REPORT INFORMATION
  Report Type: Report from Study
  Country: JP (occurrence: JP)
  Receive Date: 20130301
  Receipt Date: 20140321
  Transmission Date: 20141002
  Serious: Yes (Other)
  Sender: FDA-Public Use
  Company Number: PHHY2013JP020097

PATIENT
  Age: 24 Year
  Sex: Male
  Weight: 57 kg

DRUGS (4)
  1. GILENYA [Suspect]
     Indication: MULTIPLE SCLEROSIS
     Dosage: 0.5 MG, QD
     Route: 048
     Dates: start: 20120702
  2. AVONEX [Concomitant]
     Indication: MULTIPLE SCLEROSIS
     Dosage: UNK UKN, UNK
     Route: 030
     Dates: start: 201206, end: 201206
  3. SOL-MELCORT [Concomitant]
     Indication: MULTIPLE SCLEROSIS
     Dosage: UNK UKN, UNK
     Dates: start: 20120629, end: 20120701
  4. MYSLEE [Concomitant]
     Indication: INSOMNIA
     Route: 048

REACTIONS (4)
  - Blood pressure decreased [Recovered/Resolved]
  - White blood cell count decreased [Unknown]
  - Lymphocyte percentage decreased [Unknown]
  - Heart rate decreased [Unknown]
